FAERS Safety Report 13961346 (Version 3)
Quarter: 2017Q4

REPORT INFORMATION
  Report Type: Report from Study
  Country: AU (occurrence: AU)
  Receive Date: 20170912
  Receipt Date: 20171109
  Transmission Date: 20180320
  Serious: Yes (Other)
  Sender: FDA-Public Use
  Company Number: AU-REGENERON PHARMACEUTICALS, INC.-2017-21830

PATIENT

DRUGS (1)
  1. EYLEA [Suspect]
     Active Substance: AFLIBERCEPT
     Indication: NEOVASCULAR AGE-RELATED MACULAR DEGENERATION
     Dosage: RIGHT EYE EVERY 10 WEEKS, DOSE NOT REPORTED
     Route: 047
     Dates: start: 20170215

REACTIONS (10)
  - Dyschromatopsia [Not Recovered/Not Resolved]
  - Intra-ocular injection [Recovered/Resolved]
  - Glaucoma [Unknown]
  - Macular degeneration [Unknown]
  - Productive cough [Recovering/Resolving]
  - Sinusitis [Recovering/Resolving]
  - Metamorphopsia [Not Recovered/Not Resolved]
  - Amblyopia [Unknown]
  - Dry eye [Unknown]
  - Visual impairment [Recovered/Resolved]

NARRATIVE: CASE EVENT DATE: 2017
